FAERS Safety Report 7380810-1 (Version None)
Quarter: 2011Q1

REPORT INFORMATION
  Report Type: 
  Country: None (occurrence: None)
  Receive Date: 20110329
  Receipt Date: 20110322
  Transmission Date: 20110831
  Serious: Yes (Hospitalization)
  Sender: FDA-Public Use
  Company Number: A0917426A

PATIENT
  Age: 60 Year
  Sex: Female
  Weight: 56.2 kg

DRUGS (2)
  1. TRACLEER [Suspect]
     Route: 048
     Dates: end: 20110101
  2. FLOLAN [Suspect]
     Route: 065
     Dates: start: 20100609

REACTIONS (1)
  - OEDEMA PERIPHERAL [None]
